FAERS Safety Report 10788632 (Version 1)
Quarter: 2015Q1

REPORT INFORMATION
  Report Type: Spontaneous
  Country: US (occurrence: US)
  Receive Date: 20150212
  Receipt Date: 20150212
  Transmission Date: 20150721
  Serious: Yes (Other)
  Sender: FDA-Public Use
  Company Number: PHEH2015US002736

PATIENT
  Sex: Male

DRUGS (2)
  1. ILARIS [Suspect]
     Active Substance: CANAKINUMAB
     Dosage: 1 DF, Q6W
     Route: 065
  2. ILARIS [Suspect]
     Active Substance: CANAKINUMAB
     Indication: MUCKLE-WELLS SYNDROME
     Dosage: 1 DF, Q8W
     Route: 065

REACTIONS (6)
  - Headache [Unknown]
  - Skin sensitisation [Unknown]
  - Skin exfoliation [Unknown]
  - Paranasal sinus hypersecretion [Unknown]
  - Rash [Unknown]
  - Malaise [Unknown]
